FAERS Safety Report 4898267-9 (Version None)
Quarter: 2006Q1

REPORT INFORMATION
  Report Type: 
  Country: None (occurrence: None)
  Receive Date: 20060201
  Receipt Date: 20051005
  Transmission Date: 20060701
  Serious: Yes (Hospitalization, Other)
  Sender: FDA-Public Use
  Company Number: US-MERCK-0510USA05546

PATIENT
  Age: 67 Year
  Sex: Male
  Weight: 102 kg

DRUGS (9)
  1. VIOXX [Suspect]
     Indication: RHEUMATOID ARTHRITIS
     Route: 048
     Dates: start: 20010101, end: 20041101
  2. ZESTRIL [Concomitant]
     Route: 048
  3. ASPIRIN [Suspect]
     Route: 048
  4. PREDNISONE [Concomitant]
     Route: 048
  5. ZEBETA [Concomitant]
     Route: 048
     Dates: end: 20020225
  6. CENTRUM SILVER [Concomitant]
     Route: 065
  7. CALCIUM (UNSPECIFIED) [Concomitant]
     Route: 065
  8. ZIAC [Concomitant]
     Route: 048
  9. VIOXX [Suspect]
     Route: 048
     Dates: start: 20010101, end: 20041101

REACTIONS (24)
  - ABDOMINAL DISCOMFORT [None]
  - ANXIETY [None]
  - ATRIAL FIBRILLATION [None]
  - BUNDLE BRANCH BLOCK LEFT [None]
  - CARDIAC DISORDER [None]
  - CARDIAC FAILURE CONGESTIVE [None]
  - CORONARY ARTERY DISEASE [None]
  - EJECTION FRACTION DECREASED [None]
  - FAECES DISCOLOURED [None]
  - FLUID OVERLOAD [None]
  - FLUID RETENTION [None]
  - HEART INJURY [None]
  - HYPERLIPIDAEMIA [None]
  - HYPERTENSION [None]
  - INJURY [None]
  - ISCHAEMIC CARDIOMYOPATHY [None]
  - MITRAL VALVE INCOMPETENCE [None]
  - MYOCARDIAL INFARCTION [None]
  - MYOCARDIAL ISCHAEMIA [None]
  - NAUSEA [None]
  - PAIN [None]
  - PERICARDIAL EFFUSION [None]
  - SINUS BRADYCARDIA [None]
  - VENTRICULAR DYSFUNCTION [None]
